FAERS Safety Report 5870476-1 (Version None)
Quarter: 2008Q3

REPORT INFORMATION
  Report Type: 
  Country: None (occurrence: None)
  Receive Date: 20080904
  Receipt Date: 20080225
  Transmission Date: 20090109
  Serious: No
  Sender: FDA-Public Use
  Company Number: US-BRISTOL-MYERS SQUIBB COMPANY-14089015

PATIENT
  Age: 53 Year
  Sex: Male

DRUGS (1)
  1. DEFINITY [Suspect]

REACTIONS (1)
  - BACK PAIN [None]
